FAERS Safety Report 8455320-0 (Version None)
Quarter: 2012Q2

REPORT INFORMATION
  Report Type: 
  Country: None (occurrence: None)
  Receive Date: 20120621
  Receipt Date: 20120615
  Transmission Date: 20120825
  Serious: Yes (Other)
  Sender: FDA-Public Use
  Company Number: US-PFIZER INC-2012146264

PATIENT
  Sex: Female

DRUGS (1)
  1. SUTENT [Suspect]
     Dosage: UNK

REACTIONS (5)
  - YELLOW SKIN [None]
  - MOUTH ULCERATION [None]
  - VULVAL HAEMORRHAGE [None]
  - MALAISE [None]
  - CHROMATURIA [None]
